FAERS Safety Report 12203329 (Version 1)
Quarter: 2016Q1

REPORT INFORMATION
  Report Type: Spontaneous
  Country: US (occurrence: None)
  Receive Date: 20160321
  Receipt Date: 20160321
  Transmission Date: 20160526
  Serious: Yes (Hospitalization)
  Sender: FDA-Public Use
  Company Number: None

PATIENT
  Age: 63 Year
  Sex: Female
  Weight: 75.02 kg

DRUGS (1)
  1. BEVACIZUMAB (RHUMAB VEGF) [Suspect]
     Active Substance: BEVACIZUMAB
     Dates: end: 20160125

REACTIONS (5)
  - Accident [None]
  - Head injury [None]
  - Fall [None]
  - Subdural haematoma [None]
  - Subarachnoid haemorrhage [None]

NARRATIVE: CASE EVENT DATE: 20160207
